FAERS Safety Report 7888310-7 (Version None)
Quarter: 2011Q4

REPORT INFORMATION
  Report Type: 
  Country: None (occurrence: None)
  Receive Date: 20111103
  Receipt Date: 20111021
  Transmission Date: 20120403
  Serious: Yes (Hospitalization)
  Sender: FDA-Public Use
  Company Number: US-BAYER-2011-025482

PATIENT
  Age: 18 Year
  Sex: Female
  Weight: 95.238 kg

DRUGS (10)
  1. TRAMADOL HCL [Concomitant]
     Dosage: 50 MG, UNK
     Dates: start: 20090225
  2. YASMIN [Suspect]
     Indication: ACNE
     Dosage: UNK
     Dates: start: 20060101, end: 20060901
  3. YASMIN [Suspect]
     Indication: MENSTRUAL CYCLE MANAGEMENT
  4. PROAIR HFA [Concomitant]
     Dosage: UNK
     Dates: start: 20090201
  5. YAZ [Suspect]
     Indication: MENSTRUAL CYCLE MANAGEMENT
  6. DICYCLOMINE [Concomitant]
     Dosage: 20 MG, UNK
     Dates: start: 20090201
  7. IBUPROFEN [Concomitant]
     Dosage: UNK UNK, PRN
  8. YAZ [Suspect]
     Indication: ACNE
     Dosage: UNK
     Dates: start: 20060901, end: 20090901
  9. CIPRO [Concomitant]
     Dosage: 250 MG, UNK
     Dates: start: 20090201, end: 20090401
  10. BELLADONNA ALKALOIDS W/PB TABLETS [Concomitant]
     Dosage: UNK
     Dates: start: 20090226

REACTIONS (6)
  - EMOTIONAL DISTRESS [None]
  - INJURY [None]
  - CHOLECYSTITIS CHRONIC [None]
  - GENERAL PHYSICAL HEALTH DETERIORATION [None]
  - ANXIETY [None]
  - PAIN [None]
